FAERS Safety Report 19430223 (Version 3)
Quarter: 2021Q3

REPORT INFORMATION
  Report Type: Spontaneous
  Country: FR (occurrence: FR)
  Receive Date: 20210617
  Receipt Date: 20210819
  Transmission Date: 20211014
  Serious: Yes (Other)
  Sender: FDA-Public Use
  Company Number: NVSC2021FR132861

PATIENT
  Age: 47 Year
  Sex: Female

DRUGS (2)
  1. AMOXICILLIN. [Suspect]
     Active Substance: AMOXICILLIN
     Indication: VAGINAL INFECTION
     Dosage: 3 G, QD (1 G, TID)
     Route: 048
     Dates: start: 202103, end: 202104
  2. ZINC SULFATE. [Concomitant]
     Active Substance: ZINC SULFATE
     Indication: PRODUCT USED FOR UNKNOWN INDICATION
     Dosage: UNK
     Route: 065

REACTIONS (2)
  - Superinfection fungal [Not Recovered/Not Resolved]
  - Superinfection bacterial [Not Recovered/Not Resolved]

NARRATIVE: CASE EVENT DATE: 202104
